FAERS Safety Report 8455978 (Version 5)
Quarter: 2012Q4

REPORT INFORMATION
  Report Type: Report from Study
  Country: JP (occurrence: JP)
  Receive Date: 20120313
  Receipt Date: 20121114
  Transmission Date: 20130627
  Serious: Yes (Hospitalization)
  Sender: FDA-Public Use
  Company Number: JP-JNJFOC-20120302716

PATIENT
  Age: 62 Year
  Sex: Male
  Weight: 60 kg

DRUGS (16)
  1. REMICADE [Suspect]
     Indication: COLITIS ULCERATIVE
     Route: 042
     Dates: start: 20120104
  2. REMICADE [Suspect]
     Indication: COLITIS ULCERATIVE
     Route: 042
     Dates: start: 20111212
  3. REMICADE [Suspect]
     Indication: COLITIS ULCERATIVE
     Route: 042
     Dates: start: 20120201
  4. PREDONINE [Suspect]
     Indication: COLITIS ULCERATIVE
     Route: 048
     Dates: start: 20120209
  5. PREDONINE [Suspect]
     Indication: COLITIS ULCERATIVE
     Route: 048
     Dates: start: 20120131, end: 20120201
  6. PREDONINE [Suspect]
     Indication: COLITIS ULCERATIVE
     Route: 048
     Dates: start: 20120202, end: 20120208
  7. SOLU-MEDROL [Concomitant]
     Indication: COLITIS ULCERATIVE
     Route: 042
     Dates: start: 20111207, end: 20111207
  8. SOLU-MEDROL [Concomitant]
     Indication: COLITIS ULCERATIVE
     Route: 042
     Dates: start: 20120123, end: 20120123
  9. SOLU-MEDROL [Concomitant]
     Indication: COLITIS ULCERATIVE
     Route: 042
     Dates: start: 20120116, end: 20120116
  10. PENTASA [Concomitant]
     Indication: COLITIS ULCERATIVE
     Route: 048
  11. PREDONINE [Concomitant]
     Indication: COLITIS ULCERATIVE
     Route: 042
     Dates: start: 20120404
  12. PREDONINE [Concomitant]
     Indication: COLITIS ULCERATIVE
     Route: 042
     Dates: start: 20120126, end: 20120130
  13. FERROMIA [Concomitant]
     Route: 048
  14. TAKEPRON [Concomitant]
     Route: 048
  15. BIOFERMIN [Concomitant]
     Route: 048
  16. LOPEMIN [Concomitant]
     Route: 048

REACTIONS (1)
  - Pneumocystis jiroveci pneumonia [Recovering/Resolving]
